FAERS Safety Report 8383432-9 (Version None)
Quarter: 2012Q2

REPORT INFORMATION
  Report Type: 
  Country: None (occurrence: None)
  Receive Date: 20120524
  Receipt Date: 20120521
  Transmission Date: 20120825
  Serious: Yes (Death, Life-Threatening, Hospitalization)
  Sender: FDA-Public Use
  Company Number: US-JNJFOC-20120108815

PATIENT
  Sex: Male

DRUGS (11)
  1. EPOGEN [Concomitant]
     Route: 065
  2. SORBITOL 50PC INJ [Concomitant]
     Route: 065
  3. SEVELAMER [Concomitant]
     Route: 065
  4. VELCADE [Suspect]
     Indication: MULTIPLE MYELOMA
     Route: 058
     Dates: start: 20110804, end: 20111031
  5. DOXORUBICIN HCL [Suspect]
     Indication: MULTIPLE MYELOMA
     Route: 042
     Dates: start: 20110808, end: 20111014
  6. NEPHRO-VITE [Concomitant]
     Route: 065
  7. PANTOPRAZOLE [Concomitant]
     Route: 065
  8. ALLOPURINOL [Concomitant]
     Route: 065
  9. DEXAMETHASONE [Concomitant]
     Route: 065
  10. FENTANYL-100 [Concomitant]
     Route: 062
  11. DOCUSATE [Concomitant]
     Route: 065

REACTIONS (10)
  - PATHOLOGICAL FRACTURE [None]
  - HOSPITALISATION [None]
  - WEIGHT DECREASED [None]
  - PAIN [None]
  - HYPOTENSION [None]
  - ASTHENIA [None]
  - DEATH [None]
  - HIP FRACTURE [None]
  - GASTROINTESTINAL HAEMORRHAGE [None]
  - DECREASED APPETITE [None]
